FAERS Safety Report 5859660-0 (Version None)
Quarter: 2008Q3

REPORT INFORMATION
  Report Type: 
  Country: None (occurrence: None)
  Receive Date: 20080827
  Receipt Date: 20080818
  Transmission Date: 20090109
  Serious: Yes (Hospitalization)
  Sender: FDA-Public Use
  Company Number: HR-JNJFOC-20080704031

PATIENT
  Sex: Male
  Weight: 79 kg

DRUGS (4)
  1. RISPOLEPT CONSTA [Suspect]
     Indication: SCHIZOPHRENIA
     Dosage: SO FAR RECEIVED 4 APPLICATIONS
     Route: 030
  2. RISPERIDONE [Suspect]
     Indication: DRUG USE FOR UNKNOWN INDICATION
     Route: 048
  3. PRAZINE [Concomitant]
  4. AKINETON [Concomitant]

REACTIONS (2)
  - DYSPHEMIA [None]
  - SPEECH DISORDER [None]
